FAERS Safety Report 7463162-8 (Version None)
Quarter: 2011Q2

REPORT INFORMATION
  Report Type: 
  Country: None (occurrence: None)
  Receive Date: 20110506
  Receipt Date: 20110427
  Transmission Date: 20111010
  Serious: Yes (Other)
  Sender: FDA-Public Use
  Company Number: US-ROCHE-747838

PATIENT
  Sex: Female
  Weight: 59.9 kg

DRUGS (2)
  1. BIRTH CONTROL PILL [Concomitant]
     Indication: CONTRACEPTION
  2. ACCUTANE [Suspect]
     Indication: ACNE
     Route: 065
     Dates: start: 19980101, end: 20020101

REACTIONS (6)
  - CROHN'S DISEASE [None]
  - ABDOMINAL PAIN [None]
  - COMPLICATION OF PREGNANCY [None]
  - RECTAL HAEMORRHAGE [None]
  - CARDIAC DISORDER [None]
  - IRRITABLE BOWEL SYNDROME [None]
